FAERS Safety Report 4942315-4 (Version None)
Quarter: 2006Q1

REPORT INFORMATION
  Report Type: 
  Country: None (occurrence: None)
  Receive Date: 20060313
  Receipt Date: 20051130
  Transmission Date: 20060701
  Serious: Yes (Other)
  Sender: FDA-Public Use
  Company Number: US-GLAXOSMITHKLINE-A0584010A

PATIENT
  Age: 69 Year
  Sex: Male

DRUGS (2)
  1. NICORETTE (MINT) [Suspect]
     Dosage: 2MG UNKNOWN
     Route: 002
  2. NICORETTE [Suspect]
     Dosage: 4MG UNKNOWN
     Route: 002

REACTIONS (4)
  - DRUG ABUSER [None]
  - DRUG INEFFECTIVE [None]
  - NICOTINE DEPENDENCE [None]
  - PHARMACEUTICAL PRODUCT COMPLAINT [None]
